FAERS Safety Report 4750195-5 (Version None)
Quarter: 2005Q3

REPORT INFORMATION
  Report Type: 
  Country: None (occurrence: None)
  Receive Date: 20050819
  Receipt Date: 20050810
  Transmission Date: 20060218
  Serious: Yes (Other)
  Sender: FDA-Public Use
  Company Number: 2005-08-0840

PATIENT
  Age: 8 Year
  Sex: Male

DRUGS (2)
  1. CLARITIN [Suspect]
     Indication: ARTHROPOD STING
     Dosage: 1 TSP ORAL
     Route: 048
     Dates: start: 20050805, end: 20050805
  2. CLARITIN [Suspect]
     Indication: SWELLING
     Dosage: 1 TSP ORAL
     Route: 048
     Dates: start: 20050805, end: 20050805

REACTIONS (6)
  - AFFECT LABILITY [None]
  - BODY TEMPERATURE INCREASED [None]
  - FEELING ABNORMAL [None]
  - PLATELET COUNT DECREASED [None]
  - POOR QUALITY DRUG ADMINISTERED [None]
  - WHITE BLOOD CELL COUNT DECREASED [None]
